FAERS Safety Report 6492169-2 (Version None)
Quarter: 2009Q4

REPORT INFORMATION
  Report Type: 
  Country: None (occurrence: None)
  Receive Date: 20091214
  Receipt Date: 20091204
  Transmission Date: 20100525
  Serious: Yes (Hospitalization)
  Sender: FDA-Public Use
  Company Number: US-BIOGENIDEC-143425

PATIENT
  Age: 57 Year
  Sex: Female
  Weight: 52 kg

DRUGS (4)
  1. AVONEX [Suspect]
     Indication: MULTIPLE SCLEROSIS
     Route: 030
     Dates: start: 19970101, end: 20020101
  2. AVONEX [Suspect]
     Route: 030
     Dates: start: 20050701
  3. ANTIDEPRESSANT (NOS) [Concomitant]
  4. VALIUM [Concomitant]

REACTIONS (7)
  - BACK PAIN [None]
  - FALL [None]
  - LOSS OF CONSCIOUSNESS [None]
  - MENTAL DISORDER [None]
  - MULTIPLE SCLEROSIS RELAPSE [None]
  - OVERDOSE [None]
  - SYNCOPE [None]
